FAERS Safety Report 4752517-8 (Version None)
Quarter: 2005Q3

REPORT INFORMATION
  Report Type: 
  Country: None (occurrence: None)
  Receive Date: 20050823
  Receipt Date: 20050811
  Transmission Date: 20060218
  Serious: No
  Sender: FDA-Public Use
  Company Number: 05H-082-0302059-00

PATIENT
  Sex: 0

DRUGS (1)
  1. HEPARIN SODIUM [Suspect]
     Dosage: INTRAVENOUS
     Route: 042

REACTIONS (3)
  - BACTERAEMIA [None]
  - ENTEROCOCCAL INFECTION [None]
  - PHARMACEUTICAL PRODUCT COMPLAINT [None]
